FAERS Safety Report 15694547 (Version 1)
Quarter: 2018Q4

REPORT INFORMATION
  Report Type: Spontaneous
  Country: US (occurrence: US)
  Receive Date: 20181126
  Receipt Date: 20181126
  Transmission Date: 20190205
  Serious: No
  Sender: FDA-Public Use
  Company Number: None

PATIENT
  Sex: Male

DRUGS (1)
  1. REPATHA [Suspect]
     Active Substance: EVOLOCUMAB
     Indication: HYPERCHOLESTEROLAEMIA
     Route: 058

REACTIONS (16)
  - Abdominal pain upper [None]
  - Diarrhoea [None]
  - Injection site erythema [None]
  - Influenza like illness [None]
  - Abdominal distension [None]
  - Constipation [None]
  - Sneezing [None]
  - Mental impairment [None]
  - Injection site bruising [None]
  - Injection site pain [None]
  - Back pain [None]
  - Nasal congestion [None]
  - Pain [None]
  - Nasopharyngitis [None]
  - Oropharyngeal pain [None]
  - Dizziness [None]
